FAERS Safety Report 16534763 (Version 2)
Quarter: 2019Q3

REPORT INFORMATION
  Report Type: Spontaneous
  Country: CA (occurrence: CA)
  Receive Date: 20190705
  Receipt Date: 20190726
  Transmission Date: 20191004
  Serious: Yes (Hospitalization)
  Sender: FDA-Public Use
  Company Number: CA-TEVA-2019-CA-1070668

PATIENT
  Age: 75 Year
  Sex: Female

DRUGS (57)
  1. NORTRIPTYLINE [Suspect]
     Active Substance: NORTRIPTYLINE
  2. ERGOCALCIFEROL. [Concomitant]
     Active Substance: ERGOCALCIFEROL
  3. NASONEX [Concomitant]
     Active Substance: MOMETASONE FUROATE
  4. PANTOPRAZOLE [Concomitant]
     Active Substance: PANTOPRAZOLE
  5. VITAMIN B 3 [Concomitant]
  6. VITAMIN B12 [Concomitant]
     Active Substance: CYANOCOBALAMIN
  7. ARAVA [Suspect]
     Active Substance: LEFLUNOMIDE
     Indication: PRODUCT USED FOR UNKNOWN INDICATION
     Dosage: 20 MILLIGRAM DAILY;
     Route: 048
  8. CELEBREX [Suspect]
     Active Substance: CELECOXIB
     Indication: ARTHRITIS
     Route: 048
  9. MYOCHRYSINE [Suspect]
     Active Substance: GOLD SODIUM THIOMALATE
     Indication: RHEUMATOID ARTHRITIS
     Route: 030
  10. SULFASALAZINE. [Suspect]
     Active Substance: SULFASALAZINE
     Dosage: 2.5 MILLIGRAM DAILY;
     Route: 048
  11. ASCORBIC ACID(VITAMIN C) [Concomitant]
  12. BIOTIN [Concomitant]
     Active Substance: BIOTIN
  13. ENBREL [Suspect]
     Active Substance: ETANERCEPT
     Indication: RHEUMATOID ARTHRITIS
     Route: 058
  14. OXYCONTIN [Suspect]
     Active Substance: OXYCODONE HYDROCHLORIDE
     Indication: PRODUCT USED FOR UNKNOWN INDICATION
     Route: 065
  15. ESOMEPRAZOLE. [Concomitant]
     Active Substance: ESOMEPRAZOLE MAGNESIUM
  16. FENTANYL. [Concomitant]
     Active Substance: FENTANYL
     Indication: PRODUCT USED FOR UNKNOWN INDICATION
     Route: 065
  17. FERROUS GLUCONATE [Concomitant]
     Active Substance: FERROUS GLUCONATE
  18. SODIUM [Concomitant]
     Active Substance: SODIUM
  19. VITAMIN D [Concomitant]
     Active Substance: VITAMIN D NOS
  20. GABAPENTIN. [Suspect]
     Active Substance: GABAPENTIN
     Indication: PRODUCT USED FOR UNKNOWN INDICATION
     Dosage: 200 MILLIGRAM DAILY;
     Route: 048
  21. APO-GABAPENTIN [Suspect]
     Active Substance: GABAPENTIN
     Indication: PRODUCT USED FOR UNKNOWN INDICATION
     Route: 065
  22. ORENCIA [Suspect]
     Active Substance: ABATACEPT
     Route: 058
  23. ACLASTA [Concomitant]
     Active Substance: ZOLEDRONIC ACID
  24. OMEGA - 3 [Concomitant]
  25. TRAZODONE [Concomitant]
     Active Substance: TRAZODONE HYDROCHLORIDE
  26. VITAMIN E [Concomitant]
     Active Substance: .ALPHA.-TOCOPHEROL
  27. CELECOXIB. [Suspect]
     Active Substance: CELECOXIB
     Indication: ARTHRITIS
     Route: 048
  28. FISH OIL [Concomitant]
     Active Substance: FISH OIL
  29. LOMOTIL [Concomitant]
     Active Substance: ATROPINE SULFATE\DIPHENOXYLATE HYDROCHLORIDE
  30. OMEGA 3-6-9 [Concomitant]
     Active Substance: FISH OIL
  31. OXYCODONE [Concomitant]
     Active Substance: OXYCODONE
  32. PYRIDOXINE [Concomitant]
     Active Substance: PYRIDOXINE
  33. VITAMIN A [Concomitant]
     Active Substance: VITAMIN A
  34. FENTANYL TRANSDERMAL SYSTEM [Suspect]
     Active Substance: FENTANYL
     Indication: PRODUCT USED FOR UNKNOWN INDICATION
     Route: 065
  35. CELECOXIB. [Suspect]
     Active Substance: CELECOXIB
     Indication: ADENOMATOUS POLYPOSIS COLI
  36. ACTEMRA [Suspect]
     Active Substance: TOCILIZUMAB
     Indication: RHEUMATOID ARTHRITIS
     Route: 042
  37. HYDROXYCHLOROQUINE/00072603/ [Suspect]
     Active Substance: HYDROXYCHLOROQUINE SULFATE
     Indication: PRODUCT USED FOR UNKNOWN INDICATION
     Dosage: 400 MILLIGRAM DAILY;
     Route: 065
  38. PLAQUENIL [Suspect]
     Active Substance: HYDROXYCHLOROQUINE SULFATE
     Indication: RHEUMATOID ARTHRITIS
     Dosage: 400 MILLIGRAM DAILY;
     Route: 065
  39. ACTONEL [Concomitant]
     Active Substance: RISEDRONATE SODIUM
  40. GENTEAL MILD [Concomitant]
     Active Substance: HYPROMELLOSE 2910 (4000 MPA.S)
  41. OXYCODONE-ACETAMINOPHEN [Concomitant]
     Active Substance: ACETAMINOPHEN\OXYCODONE HYDROCHLORIDE
  42. ORENCIA [Suspect]
     Active Substance: ABATACEPT
     Indication: RHEUMATOID ARTHRITIS
     Route: 042
  43. SULFASALAZINE. [Suspect]
     Active Substance: SULFASALAZINE
     Indication: RHEUMATOID ARTHRITIS
     Dosage: 500 MILLIGRAM DAILY;
     Route: 048
  44. LOPERAMIDE [Concomitant]
     Active Substance: LOPERAMIDE
  45. NEXIUM [Concomitant]
     Active Substance: ESOMEPRAZOLE MAGNESIUM
  46. NORTRIPTYLINE [Concomitant]
     Active Substance: NORTRIPTYLINE
  47. OXYCODONE-ACETAMINOPHEN [Concomitant]
     Active Substance: ACETAMINOPHEN\OXYCODONE HYDROCHLORIDE
  48. PREDNISONE. [Concomitant]
     Active Substance: PREDNISONE
  49. THIAMINE HCL [Concomitant]
     Active Substance: THIAMINE HYDROCHLORIDE
  50. VITAMIN D3 [Concomitant]
     Active Substance: CHOLECALCIFEROL
  51. XELJANZ [Concomitant]
     Active Substance: TOFACITINIB CITRATE
  52. METHOTREXATE. [Suspect]
     Active Substance: METHOTREXATE
     Indication: RHEUMATOID ARTHRITIS
     Route: 058
  53. ACETAMINOPHEN. [Concomitant]
     Active Substance: ACETAMINOPHEN
  54. CALCIUM [Concomitant]
     Active Substance: CALCIUM
  55. LOMOTIL [Concomitant]
     Active Substance: ATROPINE SULFATE\DIPHENOXYLATE HYDROCHLORIDE
  56. TRAZODONE /00447702/ [Concomitant]
     Active Substance: TRAZODONE HYDROCHLORIDE
  57. TYLENOL [Concomitant]
     Active Substance: ACETAMINOPHEN

REACTIONS (43)
  - Adverse drug reaction [Unknown]
  - Bone cyst [Unknown]
  - Drug hypersensitivity [Unknown]
  - Exostosis [Unknown]
  - Mobility decreased [Unknown]
  - Musculoskeletal stiffness [Unknown]
  - Sleep disorder [Unknown]
  - Deformity [Unknown]
  - Epigastric discomfort [Unknown]
  - Myocardial infarction [Unknown]
  - Therapeutic product effect decreased [Unknown]
  - Arthralgia [Unknown]
  - Hospitalisation [Unknown]
  - Pleural thickening [Unknown]
  - Renal impairment [Unknown]
  - Blood potassium increased [Unknown]
  - Deafness neurosensory [Unknown]
  - Gastrointestinal disorder [Unknown]
  - Osteopenia [Unknown]
  - Pain in extremity [Unknown]
  - Skin lesion [Unknown]
  - Blood magnesium increased [Unknown]
  - Drug ineffective [Unknown]
  - Nausea [Unknown]
  - Pain [Unknown]
  - Pleural fibrosis [Unknown]
  - Presbyacusis [Unknown]
  - Treatment failure [Unknown]
  - Adverse reaction [Unknown]
  - Arthropathy [Unknown]
  - Crohn^s disease [Unknown]
  - Fatigue [Unknown]
  - Hypersensitivity [Unknown]
  - Infection [Unknown]
  - Joint swelling [Unknown]
  - Cyst [Unknown]
  - Diarrhoea [Unknown]
  - Drug intolerance [Unknown]
  - Blood creatinine increased [Unknown]
  - Dry eye [Unknown]
  - Osteoarthritis [Unknown]
  - Osteosclerosis [Unknown]
  - Rheumatoid arthritis [Unknown]
